FAERS Safety Report 9022400 (Version 2)
Quarter: 2013Q1

REPORT INFORMATION
  Report Type: Spontaneous
  Country: CA (occurrence: CA)
  Receive Date: 20130118
  Receipt Date: 20130215
  Transmission Date: 20140127
  Serious: Yes (Other)
  Sender: FDA-Public Use
  Company Number: PHHY2012CA122831

PATIENT
  Sex: Male

DRUGS (2)
  1. GLEEVEC [Suspect]
     Indication: GASTROINTESTINAL STROMAL TUMOUR
     Dosage: 200 MG, TID
     Route: 048
     Dates: start: 2001
  2. GLEEVEC [Suspect]
     Dosage: 600 MG, QD
     Route: 048

REACTIONS (7)
  - Cystitis interstitial [Unknown]
  - Dysuria [Unknown]
  - Nocturia [Unknown]
  - Arthralgia [Unknown]
  - Eye irritation [Unknown]
  - Periorbital oedema [Unknown]
  - Muscle spasms [Unknown]
